FAERS Safety Report 25754547 (Version 1)
Quarter: 2025Q3

REPORT INFORMATION
  Report Type: Report from Study
  Country: US (occurrence: US)
  Receive Date: 20250903
  Receipt Date: 20250903
  Transmission Date: 20251020
  Serious: Yes (Hospitalization)
  Sender: ACADIA PHARMACEUTICALS
  Company Number: US-ACADIA PHARMACEUTICALS INC.-ACA-2025-PIM-009763

PATIENT
  Age: 73 Year
  Sex: Male

DRUGS (21)
  1. NUPLAZID [Suspect]
     Active Substance: PIMAVANSERIN TARTRATE
     Indication: Parkinson^s disease
     Dosage: 10 MILLIGRAM, QD
     Route: 048
  2. MIRTAZAPINE [Concomitant]
     Active Substance: MIRTAZAPINE
  3. FLUPHENAZINE HYDROCHLORIDE [Concomitant]
     Active Substance: FLUPHENAZINE HYDROCHLORIDE
  4. PROBIOTIC 10 [BIFIDOBACTERIUM LACTIS;LACTIPLANTIBACILLUS PLANTARUM;LAC [Concomitant]
  5. CEPHALEXIN [Concomitant]
     Active Substance: CEPHALEXIN
  6. ATENOLOL [Concomitant]
     Active Substance: ATENOLOL
  7. ATORVASTATIN CALCIUM [Concomitant]
     Active Substance: ATORVASTATIN CALCIUM
  8. BUSPIRONE HCL [Concomitant]
     Active Substance: BUSPIRONE HYDROCHLORIDE
  9. FLUOXETINE HYDROCHLORIDE [Concomitant]
     Active Substance: FLUOXETINE HYDROCHLORIDE
  10. CARBIDOPA LEVODOPA [Concomitant]
     Active Substance: CARBIDOPA\LEVODOPA
  11. FAMOTIDINE [Concomitant]
     Active Substance: FAMOTIDINE
  12. ASPIRIN [Concomitant]
     Active Substance: ASPIRIN
  13. AMANTADINE [Concomitant]
     Active Substance: AMANTADINE
  14. TAMSULOSIN HYDROCHLORIDE [Concomitant]
     Active Substance: TAMSULOSIN HYDROCHLORIDE
  15. OMEPRAZOLE [Concomitant]
     Active Substance: OMEPRAZOLE
  16. ACETAMINOPHEN [Concomitant]
     Active Substance: ACETAMINOPHEN
  17. GABAPENTIN [Concomitant]
     Active Substance: GABAPENTIN
  18. TRAZODONE HCL [Concomitant]
     Active Substance: TRAZODONE HYDROCHLORIDE
  19. FISH OIL [Concomitant]
     Active Substance: FISH OIL
  20. VITAMIN D3 [Concomitant]
     Active Substance: CHOLECALCIFEROL
  21. MIRABEGRON [Concomitant]
     Active Substance: MIRABEGRON

REACTIONS (2)
  - Urinary tract infection [Recovered/Resolved]
  - Gait disturbance [Recovered/Resolved]

NARRATIVE: CASE EVENT DATE: 20250709
